FAERS Safety Report 20488045 (Version 2)
Quarter: 2022Q1

REPORT INFORMATION
  Report Type: Spontaneous
  Country: CN (occurrence: CN)
  Receive Date: 20220218
  Receipt Date: 20220223
  Transmission Date: 20220423
  Serious: Yes (Other)
  Sender: FDA-Public Use
  Company Number: CN-BEH-2022142329

PATIENT
  Age: 54 Year
  Sex: Male
  Weight: 70 kg

DRUGS (1)
  1. ALBURX [Suspect]
     Active Substance: ALBUMIN HUMAN
     Indication: Supplementation therapy
     Dosage: 10 GRAM, QD
     Route: 041
     Dates: start: 20220210, end: 20220210

REACTIONS (4)
  - Tachypnoea [Recovering/Resolving]
  - Palpitations [Recovering/Resolving]
  - Hypoaesthesia [Recovering/Resolving]
  - Hypoaesthesia oral [Recovering/Resolving]

NARRATIVE: CASE EVENT DATE: 20220210
